FAERS Safety Report 9294928 (Version 2)
Quarter: 2013Q3

REPORT INFORMATION
  Report Type: Spontaneous
  Country: DZ (occurrence: DZ)
  Receive Date: 20130517
  Receipt Date: 20130710
  Transmission Date: 20140515
  Serious: Yes (Other)
  Sender: FDA-Public Use
  Company Number: DZ-ROCHE-1222527

PATIENT
  Age: 23 Year
  Sex: Male
  Weight: 62 kg

DRUGS (2)
  1. ACTEMRA [Suspect]
     Indication: RENAL AMYLOIDOSIS
     Dosage: DILUTED IN 100 ML OF SALINE SOLUTION 4 DROPS PER MINUTE DURING 15 MINUTES THEN 11 DROPS PER MINUTE D
     Route: 042
     Dates: start: 20121217, end: 20121217
  2. MESALAZINE [Suspect]
     Indication: CROHN^S DISEASE
     Route: 048
     Dates: start: 2010

REACTIONS (4)
  - Urinary tract infection [Unknown]
  - C-reactive protein increased [Unknown]
  - Blood creatinine increased [Not Recovered/Not Resolved]
  - Weight decreased [Unknown]
